FAERS Safety Report 8782410 (Version 1)
Quarter: 2012Q4

REPORT INFORMATION
  Report Type: 
  Country: US (occurrence: US)
  Receive Date: 20120913
  Receipt Date: 20120913
  Transmission Date: 20130627
  Serious: Yes (Other)
  Sender: FDA-Public Use
  Company Number: CHPA2012US019431

PATIENT
  Age: 80 Year
  Sex: Female

DRUGS (3)
  1. VOLTAREN GEL [Suspect]
     Indication: CARPAL TUNNEL SYNDROME
     Dosage: Unk, Unk
     Route: 061
     Dates: start: 20110930
  2. IBUPROFEN [Concomitant]
     Indication: PAIN
  3. ANTICOAGULANTS [Concomitant]

REACTIONS (4)
  - Pneumonia [Unknown]
  - Pain [Unknown]
  - Off label use [Unknown]
  - Drug administered at inappropriate site [Unknown]
